FAERS Safety Report 13957454 (Version 9)
Quarter: 2018Q1

REPORT INFORMATION
  Report Type: Spontaneous
  Country: US (occurrence: US)
  Receive Date: 20170912
  Receipt Date: 20180326
  Transmission Date: 20180508
  Serious: Yes (Hospitalization)
  Sender: FDA-Public Use
  Company Number: US-VIFOR (INTERNATIONAL) INC.-VIT-2017-08389

PATIENT
  Age: 57 Year
  Sex: Female
  Weight: 93.34 kg

DRUGS (36)
  1. LORADAMED [Concomitant]
  2. LEVEMIR [Concomitant]
     Active Substance: INSULIN DETEMIR
  3. MINOXIDIL. [Concomitant]
     Active Substance: MINOXIDIL
  4. SENOKOT [Concomitant]
     Active Substance: SENNOSIDES
  5. ACETYLSALICYLIC ACID [Concomitant]
     Active Substance: ASPIRIN
  6. GABAPENTIN. [Concomitant]
     Active Substance: GABAPENTIN
  7. PLAVIX [Concomitant]
     Active Substance: CLOPIDOGREL BISULFATE
  8. LEVOTHYROXINE SODIUM. [Concomitant]
     Active Substance: LEVOTHYROXINE SODIUM
  9. AMLODIPINE BESILATE [Concomitant]
     Active Substance: AMLODIPINE BESYLATE
  10. ALBUTEROL. [Concomitant]
     Active Substance: ALBUTEROL
  11. NYSTATIN. [Concomitant]
     Active Substance: NYSTATIN
  12. HYDRALAZINE HYDROCHLORIDE. [Concomitant]
     Active Substance: HYDRALAZINE HYDROCHLORIDE
  13. NORCO [Concomitant]
     Active Substance: ACETAMINOPHEN\HYDROCODONE BITARTRATE
  14. MAGNESIUM CARBONATE~~ALUMINIUM HYDROXIDE GEL, DRIED [Concomitant]
  15. VELTASSA [Suspect]
     Active Substance: PATIROMER
     Indication: HYPERKALAEMIA
     Route: 048
     Dates: start: 20170726
  16. ZOLPIDEM TARTRATE. [Concomitant]
     Active Substance: ZOLPIDEM TARTRATE
  17. NOVOLOG [Concomitant]
     Active Substance: INSULIN ASPART
  18. LASIX [Concomitant]
     Active Substance: FUROSEMIDE
  19. COLACE [Concomitant]
     Active Substance: DOCUSATE SODIUM
  20. DUONEB [Concomitant]
     Active Substance: ALBUTEROL SULFATE\IPRATROPIUM BROMIDE
  21. PANTOPRAZOLE SODIUM SESQUIHYDRATE [Concomitant]
     Active Substance: PANTOPRAZOLE SODIUM
  22. SENNA [Concomitant]
     Active Substance: SENNA LEAF\SENNOSIDES\SENNOSIDES A AND B
  23. KAYEXALATE [Concomitant]
     Active Substance: SODIUM POLYSTYRENE SULFONATE
  24. VELTASSA [Suspect]
     Active Substance: PATIROMER
     Indication: DEVICE DEPENDENCE
     Route: 048
     Dates: start: 20171020
  25. ZOFRAN [Concomitant]
     Active Substance: ONDANSETRON HYDROCHLORIDE
  26. CYMBALTA [Concomitant]
     Active Substance: DULOXETINE HYDROCHLORIDE
  27. CLONIDINE HYDROCHLORIDE. [Concomitant]
     Active Substance: CLONIDINE HYDROCHLORIDE
  28. ATORVASTATIN CALCIUM. [Concomitant]
     Active Substance: ATORVASTATIN CALCIUM
  29. VITAMIN B COMPLEX [Concomitant]
     Active Substance: CYANOCOBALAMIN\DEXPANTHENOL\NIACINAMIDE\PYRIDOXINE HYDROCHLORIDE\RIBOFLAVIN 5^-PHOSPHATE SODIUM\THIAMINE HYDROCHLORIDE\VITAMIN B COMPLEX
  30. SEVELAMER [Concomitant]
     Active Substance: SEVELAMER
  31. LACTOBACILLUS ACIDOPHILUS [Concomitant]
     Active Substance: LACTOBACILLUS ACIDOPHILUS
  32. XANAX [Concomitant]
     Active Substance: ALPRAZOLAM
  33. CARVEDILOL. [Concomitant]
     Active Substance: CARVEDILOL
  34. INSULIN [Concomitant]
     Active Substance: INSULIN NOS
  35. TIOTROPIUM [Concomitant]
     Active Substance: TIOTROPIUM
  36. BISACODYL. [Concomitant]
     Active Substance: BISACODYL

REACTIONS (19)
  - Dyspnoea [Recovered/Resolved]
  - Loss of consciousness [Unknown]
  - Somnolence [Unknown]
  - Pulmonary oedema [Recovered/Resolved]
  - Abdominal discomfort [Unknown]
  - Hypoglycaemia [Unknown]
  - Unresponsive to stimuli [Unknown]
  - Oxygen consumption decreased [Unknown]
  - Bradycardia [Unknown]
  - Blood pressure fluctuation [Unknown]
  - Hyperkalaemia [Unknown]
  - Nausea [Unknown]
  - Oedema peripheral [Unknown]
  - Chronic obstructive pulmonary disease [Recovered/Resolved]
  - Colitis [Unknown]
  - Staphylococcus test positive [Unknown]
  - Product taste abnormal [Recovered/Resolved]
  - Cardiomegaly [Unknown]
  - Pulmonary congestion [Unknown]

NARRATIVE: CASE EVENT DATE: 2017
